FAERS Safety Report 18118587 (Version 6)
Quarter: 2021Q2

REPORT INFORMATION
  Report Type: Spontaneous
  Country: US (occurrence: US)
  Receive Date: 20200806
  Receipt Date: 20210609
  Transmission Date: 20210717
  Serious: Yes (Other)
  Sender: FDA-Public Use
  Company Number: US-PFIZER INC-2020294578

PATIENT
  Age: 61 Year
  Sex: Female

DRUGS (5)
  1. XGEVA [Concomitant]
     Active Substance: DENOSUMAB
     Dosage: UNK
  2. IBRANCE [Suspect]
     Active Substance: PALBOCICLIB
     Indication: BREAST CANCER METASTATIC
     Dosage: 125 MG
  3. HYDROCODONE [Concomitant]
     Active Substance: HYDROCODONE
     Dosage: UNK
  4. ADVIL [Concomitant]
     Active Substance: IBUPROFEN
     Dosage: UNK
  5. FASLODEX [Concomitant]
     Active Substance: FULVESTRANT
     Dosage: UNK

REACTIONS (9)
  - Choking [Unknown]
  - Pain in extremity [Unknown]
  - Tooth abscess [Unknown]
  - Memory impairment [Unknown]
  - Decreased immune responsiveness [Unknown]
  - Blood oestrogen decreased [Unknown]
  - Haematoma [Unknown]
  - Fatigue [Not Recovered/Not Resolved]
  - White blood cell count decreased [Not Recovered/Not Resolved]

NARRATIVE: CASE EVENT DATE: 20201228
